FAERS Safety Report 23368737 (Version 1)
Quarter: 2024Q1

REPORT INFORMATION
  Report Type: Spontaneous
  Country: CN (occurrence: CN)
  Receive Date: 20240105
  Receipt Date: 20240105
  Transmission Date: 20240410
  Serious: Yes (Death, Other)
  Sender: FDA-Public Use
  Company Number: CN-JNJFOC-20240104455

PATIENT

DRUGS (1)
  1. UPTRAVI [Suspect]
     Active Substance: SELEXIPAG
     Indication: Product used for unknown indication
     Route: 048

REACTIONS (74)
  - Death [Fatal]
  - Hepatic cirrhosis [Unknown]
  - Portal hypertension [Unknown]
  - Chronic hepatic failure [Unknown]
  - Pneumonia [Unknown]
  - Portal hypertensive gastropathy [Unknown]
  - Cardiac failure congestive [Unknown]
  - Syncope [Unknown]
  - Gastric varices [Unknown]
  - Congestive hepatopathy [Unknown]
  - Protein-losing gastroenteropathy [Unknown]
  - Hypoxia [Unknown]
  - Spontaneous bacterial peritonitis [Unknown]
  - Internal haemorrhage [Unknown]
  - Pericardial effusion [Unknown]
  - Atrial fibrillation [Unknown]
  - Haematochezia [Unknown]
  - Decreased appetite [Unknown]
  - Dehydration [Unknown]
  - Gout [Unknown]
  - Ear pain [Unknown]
  - Ear discomfort [Unknown]
  - Ear congestion [Unknown]
  - Nasopharyngitis [Unknown]
  - Influenza [Unknown]
  - Body mass index decreased [Unknown]
  - Haemoglobin decreased [Unknown]
  - Heart rate increased [Unknown]
  - Headache [Unknown]
  - Dizziness [Unknown]
  - Fall [Unknown]
  - Pain in jaw [Unknown]
  - Pain in extremity [Unknown]
  - Myalgia [Unknown]
  - Cough [Unknown]
  - Nasal congestion [Unknown]
  - Duodenal neoplasm [Unknown]
  - Multiple allergies [Unknown]
  - Telangiectasia [Unknown]
  - Pain [Unknown]
  - Malaise [Unknown]
  - Walking disability [Unknown]
  - Polyuria [Unknown]
  - Oliguria [Unknown]
  - Scrotal swelling [Unknown]
  - Diarrhoea [Unknown]
  - Nausea [Unknown]
  - Vomiting [Unknown]
  - Palpitations [Unknown]
  - Hypotension [Unknown]
  - Flushing [Unknown]
  - Anaemia [Unknown]
  - Hypersplenism [Unknown]
  - Fatigue [Unknown]
  - Arthralgia [Unknown]
  - Insomnia [Unknown]
  - Asthenia [Unknown]
  - Back pain [Unknown]
  - Cardiac output increased [Unknown]
  - Brain natriuretic peptide increased [Unknown]
  - Metapneumovirus infection [Unknown]
  - Faeces soft [Unknown]
  - Atrial tachycardia [Unknown]
  - Jugular vein distension [Unknown]
  - Transferrin saturation decreased [Unknown]
  - Blood corticotrophin decreased [Unknown]
  - Haematocrit decreased [Unknown]
  - Dyspnoea [Unknown]
  - Gastrooesophageal reflux disease [Unknown]
  - Gastrointestinal motility disorder [Unknown]
  - Epistaxis [Unknown]
  - Rhinorrhoea [Unknown]
  - Blood creatinine increased [Unknown]
  - Off label use [Unknown]
